FAERS Safety Report 9855499 (Version 1)
Quarter: 2013Q4

REPORT INFORMATION
  Report Type: Spontaneous
  Country: US (occurrence: None)
  Receive Date: 20131226
  Receipt Date: 20131226
  Transmission Date: 20140711
  Serious: Yes (Other)
  Sender: FDA-Public Use
  Company Number: PHEH2012US020959

PATIENT
  Sex: 0

DRUGS (1)
  1. SANDOSTATIN LAR DEPOT (OCTREOTIDE WITH POLY (D L-LACTIDE-CO-GLYCOLIDE)) UNKNOWN [Suspect]
     Dosage: 20 MG, EVERY 4 WEEKS, INTRAMUSCULAR
     Route: 030
     Dates: start: 20121015

REACTIONS (4)
  - Headache [None]
  - Pain [None]
  - Nausea [None]
  - Vomiting [None]
